FAERS Safety Report 8908003 (Version 2)
Quarter: 2013Q1

REPORT INFORMATION
  Report Type: Spontaneous
  Country: ES (occurrence: ES)
  Receive Date: 20121113
  Receipt Date: 20130111
  Transmission Date: 20140127
  Serious: Yes (Other)
  Sender: FDA-Public Use
  Company Number: ES-009507513-1211ESP005299

PATIENT
  Age: 29 Year
  Sex: Female
  Weight: 52 kg

DRUGS (2)
  1. COSOPT [Suspect]
     Indication: BLOOD GLUCOSE
     Dosage: 1 DROP IN 1 EYE/12 HOUR
     Route: 047
     Dates: start: 2006, end: 200909
  2. TIMOLOL MALEATE [Suspect]
     Indication: DEVELOPMENTAL GLAUCOMA
     Route: 047

REACTIONS (3)
  - Complication of delivery [Unknown]
  - Maternal exposure during pregnancy [Recovered/Resolved]
  - Exposure during breast feeding [Unknown]
